FAERS Safety Report 20738566 (Version 1)
Quarter: 2022Q2

REPORT INFORMATION
  Report Type: Spontaneous
  Country: US (occurrence: None)
  Receive Date: 20220421
  Receipt Date: 20220421
  Transmission Date: 20220721
  Serious: Yes (Hospitalization)
  Sender: FDA-Public Use
  Company Number: None

PATIENT
  Age: 66 Year
  Sex: Female

DRUGS (1)
  1. CAPECITABINE [Suspect]
     Active Substance: CAPECITABINE
     Dosage: FREQUENCY : TWICE A DAY;?
     Route: 048
     Dates: start: 202109

REACTIONS (8)
  - Heart rate irregular [None]
  - Erythema [None]
  - Paraesthesia [None]
  - Dizziness [None]
  - Fall [None]
  - Loss of consciousness [None]
  - Back injury [None]
  - Blood pressure decreased [None]

NARRATIVE: CASE EVENT DATE: 20220331
